FAERS Safety Report 6879428-6 (Version None)
Quarter: 2010Q3

REPORT INFORMATION
  Report Type: 
  Country: None (occurrence: None)
  Receive Date: 20100728
  Receipt Date: 20100715
  Transmission Date: 20110219
  Serious: Yes (Other)
  Sender: FDA-Public Use
  Company Number: PHHY2010US18726

PATIENT
  Sex: Female

DRUGS (12)
  1. RECLAST [Suspect]
     Dosage: 5 MG
     Route: 042
     Dates: start: 20071215
  2. RECLAST [Suspect]
     Dosage: 5 MG
     Route: 042
     Dates: start: 20081225
  3. SINEMET [Concomitant]
     Indication: PARKINSON'S DISEASE
     Dosage: UNK
  4. ADVAIR DISKUS 100/50 [Concomitant]
     Indication: OSTEOPOROSIS
  5. CELEXA [Concomitant]
  6. MAGNESIUM [Concomitant]
  7. ZINC [Concomitant]
  8. VITAMIN D3 [Concomitant]
  9. ASCORBIC ACID [Concomitant]
  10. AZILECT [Concomitant]
  11. CALCIUM CITRATE [Concomitant]
     Dosage: UNK
  12. SINEMET CR [Concomitant]
     Dosage: UNK

REACTIONS (9)
  - ABDOMINAL DISTENSION [None]
  - EYE DISORDER [None]
  - FALL [None]
  - INFLUENZA LIKE ILLNESS [None]
  - MOVEMENT DISORDER [None]
  - SUPRANUCLEAR PALSY [None]
  - TOOTH EXTRACTION [None]
  - WRIST FRACTURE [None]
  - WRIST SURGERY [None]
